FAERS Safety Report 21162641 (Version 3)
Quarter: 2024Q1

REPORT INFORMATION
  Report Type: Spontaneous
  Country: CA (occurrence: CA)
  Receive Date: 20220802
  Receipt Date: 20240122
  Transmission Date: 20240409
  Serious: Yes (Hospitalization, Other)
  Sender: FDA-Public Use
  Company Number: CA-MYLANLABS-2022M1082772

PATIENT
  Age: 55 Year
  Sex: Male

DRUGS (36)
  1. CLOZAPINE [Suspect]
     Active Substance: CLOZAPINE
     Indication: Schizoaffective disorder bipolar type
     Dosage: 150 MILLIGRAM, QD
     Route: 065
  2. CLOZAPINE [Suspect]
     Active Substance: CLOZAPINE
     Indication: Psychotic disorder
  3. CLOZAPINE [Suspect]
     Active Substance: CLOZAPINE
     Indication: Obsessive-compulsive disorder
  4. CLOZAPINE [Suspect]
     Active Substance: CLOZAPINE
     Indication: Schizoaffective disorder bipolar type
     Dosage: 625 MILLIGRAM, QD
     Route: 065
  5. CLOZAPINE [Suspect]
     Active Substance: CLOZAPINE
     Indication: Psychotic disorder
  6. CLOZAPINE [Suspect]
     Active Substance: CLOZAPINE
     Indication: Obsessive-compulsive disorder
  7. ZOPICLONE [Suspect]
     Active Substance: ZOPICLONE
     Indication: Schizoaffective disorder bipolar type
     Dosage: 15 MILLIGRAM
     Route: 065
  8. ZOPICLONE [Suspect]
     Active Substance: ZOPICLONE
     Indication: Psychotic disorder
  9. ZOPICLONE [Suspect]
     Active Substance: ZOPICLONE
     Indication: Obsessive-compulsive disorder
  10. DEPAKOTE [Suspect]
     Active Substance: DIVALPROEX SODIUM
     Indication: Schizoaffective disorder bipolar type
     Dosage: 1500 MILLIGRAM
     Route: 065
  11. DEPAKOTE [Suspect]
     Active Substance: DIVALPROEX SODIUM
     Indication: Psychotic disorder
  12. DEPAKOTE [Suspect]
     Active Substance: DIVALPROEX SODIUM
     Indication: Obsessive-compulsive disorder
  13. FLUVOXAMINE [Suspect]
     Active Substance: FLUVOXAMINE
     Indication: Schizoaffective disorder bipolar type
     Dosage: UNK
     Route: 065
  14. FLUVOXAMINE [Suspect]
     Active Substance: FLUVOXAMINE
     Indication: Psychotic disorder
  15. FLUVOXAMINE [Suspect]
     Active Substance: FLUVOXAMINE
     Indication: Obsessive-compulsive disorder
  16. FLUVOXAMINE [Suspect]
     Active Substance: FLUVOXAMINE
     Indication: Schizoaffective disorder bipolar type
     Dosage: 200 MILLIGRAM, QD
     Route: 065
  17. FLUVOXAMINE [Suspect]
     Active Substance: FLUVOXAMINE
     Indication: Psychotic disorder
  18. FLUVOXAMINE [Suspect]
     Active Substance: FLUVOXAMINE
     Indication: Obsessive-compulsive disorder
  19. FLUOXETINE HYDROCHLORIDE [Suspect]
     Active Substance: FLUOXETINE HYDROCHLORIDE
     Indication: Schizoaffective disorder bipolar type
     Dosage: 60 MILLIGRAM
     Route: 065
  20. FLUOXETINE HYDROCHLORIDE [Suspect]
     Active Substance: FLUOXETINE HYDROCHLORIDE
     Indication: Psychotic disorder
  21. FLUOXETINE HYDROCHLORIDE [Suspect]
     Active Substance: FLUOXETINE HYDROCHLORIDE
     Indication: Obsessive-compulsive disorder
  22. ZUCLOPENTHIXOL DECANOATE [Suspect]
     Active Substance: ZUCLOPENTHIXOL DECANOATE
     Indication: Schizoaffective disorder bipolar type
     Dosage: 450 MILLIGRAM, QW
     Route: 065
  23. ZUCLOPENTHIXOL DECANOATE [Suspect]
     Active Substance: ZUCLOPENTHIXOL DECANOATE
     Indication: Psychotic disorder
  24. ZUCLOPENTHIXOL DECANOATE [Suspect]
     Active Substance: ZUCLOPENTHIXOL DECANOATE
     Indication: Obsessive-compulsive disorder
  25. PROCYCLIDINE [Suspect]
     Active Substance: PROCYCLIDINE
     Indication: Schizoaffective disorder bipolar type
     Dosage: UNK
     Route: 065
  26. PROCYCLIDINE [Suspect]
     Active Substance: PROCYCLIDINE
     Indication: Psychotic disorder
  27. PROCYCLIDINE [Suspect]
     Active Substance: PROCYCLIDINE
     Indication: Obsessive-compulsive disorder
  28. OXAZEPAM [Suspect]
     Active Substance: OXAZEPAM
     Indication: Schizoaffective disorder bipolar type
     Dosage: 20 MILLIGRAM
     Route: 065
  29. OXAZEPAM [Suspect]
     Active Substance: OXAZEPAM
     Indication: Psychotic disorder
  30. OXAZEPAM [Suspect]
     Active Substance: OXAZEPAM
     Indication: Obsessive-compulsive disorder
  31. BUSPIRONE [Suspect]
     Active Substance: BUSPIRONE HYDROCHLORIDE
     Indication: Schizoaffective disorder bipolar type
     Dosage: 60 MILLIGRAM
     Route: 065
  32. BUSPIRONE [Suspect]
     Active Substance: BUSPIRONE HYDROCHLORIDE
     Indication: Psychotic disorder
  33. BUSPIRONE [Suspect]
     Active Substance: BUSPIRONE HYDROCHLORIDE
     Indication: Obsessive-compulsive disorder
  34. CARBAMAZEPINE [Concomitant]
     Active Substance: CARBAMAZEPINE
     Indication: Product used for unknown indication
     Dosage: UNK
     Route: 065
  35. CLONAZEPAM [Concomitant]
     Active Substance: CLONAZEPAM
     Indication: Product used for unknown indication
     Dosage: UNK
     Route: 065
  36. QUETIAPINE [Concomitant]
     Active Substance: QUETIAPINE
     Indication: Product used for unknown indication
     Dosage: UNK
     Route: 065

REACTIONS (11)
  - Antipsychotic drug level increased [Unknown]
  - Irritability [Unknown]
  - Drug interaction [Unknown]
  - Disorientation [Recovering/Resolving]
  - Condition aggravated [Unknown]
  - Aggression [Unknown]
  - Obesity [Recovering/Resolving]
  - Tardive dyskinesia [Unknown]
  - Sedation [Recovering/Resolving]
  - Orthostatic hypotension [Unknown]
  - Delirium [Unknown]
